FAERS Safety Report 15712366 (Version 4)
Quarter: 2020Q1

REPORT INFORMATION
  Report Type: Report from Study
  Country: US (occurrence: US)
  Receive Date: 20181212
  Receipt Date: 20200107
  Transmission Date: 20200409
  Serious: Yes (Other)
  Sender: FDA-Public Use
  Company Number: US-ROCHE-2224911

PATIENT
  Age: 53 Year
  Sex: Female
  Weight: 140.74 kg

DRUGS (34)
  1. OCREVUS [Suspect]
     Active Substance: OCRELIZUMAB
     Dosage: ONGOING:YES
     Route: 065
  2. CYANOCOBALAMIN. [Concomitant]
     Active Substance: CYANOCOBALAMIN
     Route: 065
  3. KEFLEX [Concomitant]
     Active Substance: CEPHALEXIN
     Dosage: 10 DAY DOSAGE
     Route: 065
     Dates: start: 20181129
  4. DOCUSATE SODIUM. [Concomitant]
     Active Substance: DOCUSATE SODIUM
     Route: 048
  5. IBUPROFEN. [Concomitant]
     Active Substance: IBUPROFEN
     Indication: PAIN
     Dosage: EVERY 6 HOURS AS NEEDED
     Route: 065
  6. OCREVUS [Suspect]
     Active Substance: OCRELIZUMAB
     Indication: MULTIPLE SCLEROSIS
     Route: 065
     Dates: start: 20171129
  7. OCREVUS [Suspect]
     Active Substance: OCRELIZUMAB
     Dosage: NEXT INFUSION 18/DEC/2018
     Route: 065
     Dates: start: 20180618
  8. LEVOCETIRIZINE [Concomitant]
     Active Substance: LEVOCETIRIZINE
     Route: 048
  9. MECLIZINE [Concomitant]
     Active Substance: MECLIZINE HYDROCHLORIDE
     Route: 048
  10. CHOLECALCIFEROL [Concomitant]
     Active Substance: CHOLECALCIFEROL
     Route: 048
  11. LYRICA [Concomitant]
     Active Substance: PREGABALIN
     Route: 048
  12. MAGNESIUM OXIDE. [Concomitant]
     Active Substance: MAGNESIUM OXIDE
     Route: 065
  13. RIVAROXABAN [Concomitant]
     Active Substance: RIVAROXABAN
     Dosage: EVERY EVENING
     Route: 048
  14. OCREVUS [Suspect]
     Active Substance: OCRELIZUMAB
     Dosage: ONGOING:NO
     Route: 065
  15. OCREVUS [Suspect]
     Active Substance: OCRELIZUMAB
     Route: 065
  16. OCREVUS [Suspect]
     Active Substance: OCRELIZUMAB
     Route: 065
  17. HYDROMORPHONE [Concomitant]
     Active Substance: HYDROMORPHONE
     Route: 048
  18. NYSTATIN. [Concomitant]
     Active Substance: NYSTATIN
     Route: 061
  19. HYDROMORPHONE [Concomitant]
     Active Substance: HYDROMORPHONE
     Indication: PAIN
     Dosage: EVERY 3 HOURS AS NEEDED
     Route: 065
  20. MODAFINIL. [Concomitant]
     Active Substance: MODAFINIL
     Dosage: 1-2 TABLES DAILY
     Route: 048
  21. NYSTATIN. [Concomitant]
     Active Substance: NYSTATIN
     Dosage: POWDER
     Route: 065
  22. PEGINTERFERON BETA-1A [Concomitant]
     Active Substance: PEGINTERFERON BETA-1A
     Dosage: 125 MCG/0.5ML?0.5 ML UNDER THE SKIN
     Route: 065
  23. MEDROXYPROGESTERONE ACETATE. [Concomitant]
     Active Substance: MEDROXYPROGESTERONE ACETATE
     Route: 065
  24. SIMVASTATIN. [Concomitant]
     Active Substance: SIMVASTATIN
     Route: 048
  25. TIZANIDINE. [Concomitant]
     Active Substance: TIZANIDINE
     Dosage: 4 MG 4 TIMES DAILY
     Route: 048
  26. OCREVUS [Suspect]
     Active Substance: OCRELIZUMAB
     Dosage: 19/JUN/2019
     Route: 042
     Dates: start: 20181218
  27. DULOXETINE. [Concomitant]
     Active Substance: DULOXETINE
     Route: 048
  28. ONDANSETRON [Concomitant]
     Active Substance: ONDANSETRON
     Dosage: EVERY 6 HOURS
     Route: 048
  29. PREGABALIN. [Concomitant]
     Active Substance: PREGABALIN
     Route: 048
  30. PSEUDOEPHEDRINE. [Concomitant]
     Active Substance: PSEUDOEPHEDRINE HYDROCHLORIDE
     Route: 048
  31. TOPIRAMATE. [Concomitant]
     Active Substance: TOPIRAMATE
     Route: 048
  32. ALBUTEROL [SALBUTAMOL] [Concomitant]
     Active Substance: ALBUTEROL
     Dosage: 90 MCG/ACT
     Route: 055
  33. METHYLPREDNISOLONE SODIUM SUCCINATE. [Concomitant]
     Active Substance: METHYLPREDNISOLONE SODIUM SUCCINATE
     Dosage: INJECT 8 MLS INTO VEINS EVERY 24 HOURS FOR 5 DAYS.?1000MG/8ML INJECTION
     Route: 065
  34. OMEGA 3 [DOCOSAHEXAENOIC ACID;EICOSAPENTAENOIC ACID] [Concomitant]
     Active Substance: DOCONEXENT\ICOSAPENT
     Route: 048

REACTIONS (3)
  - Urinary tract infection [Recovered/Resolved]
  - Postoperative wound complication [Not Recovered/Not Resolved]
  - Kidney infection [Recovered/Resolved]

NARRATIVE: CASE EVENT DATE: 2018
